FAERS Safety Report 8899071 (Version 1)
Quarter: 2012Q4

REPORT INFORMATION
  Report Type: 
  Country: US (occurrence: US)
  Receive Date: 20121108
  Receipt Date: 20121108
  Transmission Date: 20130627
  Serious: No
  Sender: FDA-Public Use
  Company Number: US-AMGEN-USASP2012027720

PATIENT
  Sex: Female

DRUGS (9)
  1. ENBREL [Suspect]
     Indication: PRODUCT USED FOR UNKNOWN INDICATION
     Dosage: 50 mg, qwk
     Route: 058
  2. METHOTREXATE [Concomitant]
     Dosage: 2.5 mg, UNK
  3. VITAMIN D /00107901/ [Concomitant]
     Dosage: 1000 IU, UNK
  4. LISINOPRIL [Concomitant]
     Dosage: 2.5 mg, UNK
  5. OMEPRAZOLE [Concomitant]
     Dosage: 10 mg, UNK
  6. DICLOFENAC [Concomitant]
     Dosage: 25 mg, UNK
  7. LEUCOVORIN /00566701/ [Concomitant]
     Dosage: 10 mg, UNK
  8. LEVOTHYROXIN [Concomitant]
     Dosage: 25 mug, UNK
  9. FOLIC ACID [Concomitant]
     Dosage: 1 mg, UNK

REACTIONS (2)
  - Dry skin [Unknown]
  - Nausea [Unknown]
